FAERS Safety Report 14910718 (Version 2)
Quarter: 2018Q3

REPORT INFORMATION
  Report Type: Report from Study
  Country: FR (occurrence: FR)
  Receive Date: 20180517
  Receipt Date: 20180727
  Transmission Date: 20181010
  Serious: Yes (Death, Other)
  Sender: FDA-Public Use
  Company Number: FR-JAZZ-2018-FR-007810

PATIENT

DRUGS (1)
  1. DEFITELIO [Suspect]
     Active Substance: DEFIBROTIDE SODIUM
     Indication: PROPHYLAXIS
     Dosage: 24.7 MG/KG, QD
     Dates: start: 20171023, end: 20171206

REACTIONS (4)
  - Lung disorder [Fatal]
  - Renal failure [Fatal]
  - Aspergillus infection [Fatal]
  - Candida infection [Fatal]

NARRATIVE: CASE EVENT DATE: 2017
